FAERS Safety Report 11627932 (Version 1)
Quarter: 2015Q4

REPORT INFORMATION
  Report Type: Spontaneous
  Country: IL (occurrence: IL)
  Receive Date: 20151014
  Receipt Date: 20151014
  Transmission Date: 20160304
  Serious: Yes (Other)
  Sender: FDA-Public Use
  Company Number: IL-BEH-2014046412

PATIENT
  Age: 41 Year
  Sex: Female

DRUGS (4)
  1. VITAMIN B12 [Concomitant]
     Active Substance: CYANOCOBALAMIN
     Indication: VITAMIN SUPPLEMENTATION
  2. BERINERT [Suspect]
     Active Substance: HUMAN C1-ESTERASE INHIBITOR
     Indication: PRODUCT USED FOR UNKNOWN INDICATION
     Route: 042
  3. IRON IN COMBINATION WITH FOLIC ACID [Concomitant]
  4. CALCIUM+ VITAMIN D [Concomitant]
     Indication: OSTEOPENIA

REACTIONS (4)
  - Exposure during pregnancy [Recovered/Resolved]
  - Tremor [Unknown]
  - Hereditary angioedema [Unknown]
  - Pruritus [Unknown]

NARRATIVE: CASE EVENT DATE: 201504
